FAERS Safety Report 26099033 (Version 1)
Quarter: 2025Q4

REPORT INFORMATION
  Report Type: Spontaneous
  Country: US (occurrence: US)
  Receive Date: 20251128
  Receipt Date: 20251128
  Transmission Date: 20260118
  Serious: Yes (Hospitalization, Other)
  Sender: Kenvue
  Company Number: US-KENVUE-20251108255

PATIENT
  Age: 79 Year
  Sex: Male

DRUGS (4)
  1. DIPHENHYDRAMINE HYDROCHLORIDE [Suspect]
     Active Substance: DIPHENHYDRAMINE HYDROCHLORIDE
     Indication: Product used for unknown indication
     Dosage: APPROXIMATELY 1,000?1,500 MG (15.6?23.4 MG/KG)
  2. CARBIDOPA LEVODOPA [Concomitant]
     Active Substance: CARBIDOPA\LEVODOPA
     Indication: Product used for unknown indication
     Route: 065
  3. FUROSEMIDE [Concomitant]
     Active Substance: FUROSEMIDE
     Indication: Product used for unknown indication
     Route: 065
  4. EMPAGLIFLOZIN [Concomitant]
     Active Substance: EMPAGLIFLOZIN
     Indication: Product used for unknown indication
     Route: 065

REACTIONS (5)
  - Hyperhidrosis [Unknown]
  - Flushing [Unknown]
  - Electrocardiogram QT prolonged [Recovered/Resolved]
  - Delirium [Recovering/Resolving]
  - Intentional overdose [Unknown]
